FAERS Safety Report 9489252 (Version 1)
Quarter: 2013Q3

REPORT INFORMATION
  Report Type: Spontaneous
  Country: CN (occurrence: CN)
  Receive Date: 20130829
  Receipt Date: 20130829
  Transmission Date: 20140515
  Serious: Yes (Other)
  Sender: FDA-Public Use
  Company Number: CN-PFIZER INC-2013247099

PATIENT
  Age: 40 Year
  Sex: Male
  Weight: 51 kg

DRUGS (1)
  1. VIAGRA [Suspect]
     Indication: ERECTILE DYSFUNCTION
     Dosage: 50 MG, HALF TABLET
     Route: 048

REACTIONS (4)
  - Visual impairment [Recovered/Resolved]
  - Eye swelling [Recovered/Resolved]
  - Metamorphopsia [Recovered/Resolved]
  - Nasal obstruction [Recovered/Resolved]
